FAERS Safety Report 8624622-7 (Version None)
Quarter: 2012Q3

REPORT INFORMATION
  Report Type: 
  Country: None (occurrence: None)
  Receive Date: 20120827
  Receipt Date: 20120822
  Transmission Date: 20120928
  Serious: Yes (Other)
  Sender: FDA-Public Use
  Company Number: US-PFIZER INC-2012206723

PATIENT
  Age: 72 Year
  Sex: Female
  Weight: 75.283 kg

DRUGS (2)
  1. LYRICA [Suspect]
     Indication: FIBROMYALGIA
     Dosage: 150 MG, ONCE
     Dates: start: 20120820, end: 20120820
  2. BENAZEPRIL [Concomitant]
     Indication: HYPERTENSION
     Dosage: 40 MG, DAILY

REACTIONS (7)
  - SLEEP DISORDER [None]
  - SOMNOLENCE [None]
  - HEADACHE [None]
  - DIZZINESS [None]
  - SWELLING FACE [None]
  - ACTIVITIES OF DAILY LIVING IMPAIRED [None]
  - MIDDLE INSOMNIA [None]
